FAERS Safety Report 5562700-X (Version None)
Quarter: 2007Q4

REPORT INFORMATION
  Report Type: 
  Country: None (occurrence: None)
  Receive Date: 20071211
  Receipt Date: 20071211
  Transmission Date: 20080405
  Serious: No
  Sender: FDA-Public Use
  Company Number: None

PATIENT
  Sex: Male
  Weight: 86 kg

DRUGS (2)
  1. CLOFARABINE [Suspect]
     Dosage: 84 MG  DAILY  IV DRIP
     Route: 041
     Dates: start: 20071206, end: 20071206
  2. CAMPATH [Suspect]
     Dosage: 20 MG  DAILY  IV DRIP
     Route: 041
     Dates: start: 20071206, end: 20071206

REACTIONS (2)
  - METASTATIC NEOPLASM [None]
  - SUBDURAL HAEMATOMA [None]
